FAERS Safety Report 6517230-5 (Version None)
Quarter: 2009Q4

REPORT INFORMATION
  Report Type: 
  Country: None (occurrence: None)
  Receive Date: 20091217
  Receipt Date: 20090619
  Transmission Date: 20100525
  Serious: Yes (Other)
  Sender: FDA-Public Use
  Company Number: 639530

PATIENT
  Age: 25 Year
  Sex: Female
  Weight: 70.3 kg

DRUGS (4)
  1. TAMIFLU [Suspect]
     Indication: PROPHYLAXIS
     Dosage: 75 MG DAILY ORAL
     Route: 048
     Dates: start: 20090613, end: 20090619
  2. MULTIVITAMIN [Concomitant]
  3. VIT D (CHOLECALCIFEROL) [Concomitant]
  4. CHROMIUM PICOLINATE (CHROMIUM TRIPICOLINATE) [Concomitant]

REACTIONS (4)
  - CRYING [None]
  - FEAR [None]
  - HALLUCINATION, AUDITORY [None]
  - PSYCHOTIC DISORDER [None]
